FAERS Safety Report 8233644-X (Version None)
Quarter: 2012Q1

REPORT INFORMATION
  Report Type: 
  Country: None (occurrence: None)
  Receive Date: 20120323
  Receipt Date: 20120323
  Transmission Date: 20120608
  Serious: Yes (Death)
  Sender: FDA-Public Use
  Company Number: None

PATIENT
  Age: 47 Year
  Sex: Female
  Weight: 108.8 kg

DRUGS (3)
  1. MITOXANTRONE [Suspect]
  2. CYTARABINE [Concomitant]
  3. ETOPOSIDE [Suspect]

REACTIONS (9)
  - ACUTE RESPIRATORY FAILURE [None]
  - ASPERGILLOMA [None]
  - BRADYCARDIA [None]
  - ENTEROCOCCAL INFECTION [None]
  - PNEUMONIA [None]
  - HYPOTENSION [None]
  - SEPSIS [None]
  - METABOLIC ACIDOSIS [None]
  - CARDIAC ARREST [None]
